FAERS Safety Report 11444424 (Version 1)
Quarter: 2015Q3

REPORT INFORMATION
  Report Type: Spontaneous
  Country: BR (occurrence: BR)
  Receive Date: 20150902
  Receipt Date: 20150902
  Transmission Date: 20151125
  Serious: Yes (Other)
  Sender: FDA-Public Use
  Company Number: PHHY2015BR101950

PATIENT
  Sex: Male
  Weight: 87 kg

DRUGS (8)
  1. ATENOLOL. [Concomitant]
     Active Substance: ATENOLOL
     Indication: HYPERTENSION
     Dosage: 1 DF, TID (ONE IN THE MORNING, ONE IN THE AFTERNOON AND ONE AT NIGHT)
     Route: 065
  2. FUROSEMIDE. [Concomitant]
     Active Substance: FUROSEMIDE
     Indication: HYPERTENSION
     Dosage: 1 DF, QD (IN THE MORNING)
     Route: 065
  3. ENALAPRIL [Suspect]
     Active Substance: ENALAPRIL
     Dosage: 3 DF, QD
     Route: 065
  4. APRESOLIN [Suspect]
     Active Substance: HYDRALAZINE HYDROCHLORIDE
     Indication: HYPERTENSION
     Dosage: 1 DF, TID (ONE IN THE MORNING, ONE IN THE AFTEROON AND ONE AT NIGHT)
     Route: 048
     Dates: start: 2007
  5. ENALAPRIL [Suspect]
     Active Substance: ENALAPRIL
     Indication: HYPERTENSION
     Dosage: 2 DF, QD
     Route: 065
  6. LOSARTAN POTASSIUM. [Concomitant]
     Active Substance: LOSARTAN POTASSIUM
     Indication: HYPERTENSION
     Dosage: 1 DF, TID (ONE IN THE MORNING, ONE IN THE AFTERNOON AND ONE AT NIGHT)
     Route: 065
  7. DILTIAZEM HYDROCHLORIDE. [Concomitant]
     Active Substance: DILTIAZEM HYDROCHLORIDE
     Indication: HYPERTENSION
     Dosage: 1 DF, TID (ONE IN THE MONING, ONE IN THE AFTERNOON AND ONE AT NIGHT)
     Route: 065
  8. ATENSINA [Concomitant]
     Active Substance: CLONIDINE
     Indication: HYPERTENSION
     Dosage: 3 OR 4 DF (AS MEASURE TO CONTROL HIS BLOOD PRESSURE WHEN HE WAS WITHOUT OF APRESOLIN), QD
     Route: 065

REACTIONS (5)
  - Blood pressure increased [Not Recovered/Not Resolved]
  - Arteriosclerosis coronary artery [Unknown]
  - Hypersensitivity [Unknown]
  - Asthmatic crisis [Unknown]
  - Wound [Unknown]

NARRATIVE: CASE EVENT DATE: 2007
